FAERS Safety Report 10743384 (Version 1)
Quarter: 2015Q1

REPORT INFORMATION
  Report Type: Spontaneous
  Country: JP (occurrence: JP)
  Receive Date: 20150128
  Receipt Date: 20150128
  Transmission Date: 20150721
  Serious: Yes (Other)
  Sender: FDA-Public Use
  Company Number: JP-ROCHE-1526861

PATIENT
  Age: 61 Year
  Sex: Female
  Weight: 51 kg

DRUGS (1)
  1. TAMIFLU [Suspect]
     Active Substance: OSELTAMIVIR PHOSPHATE
     Indication: ANTIVIRAL PROPHYLAXIS
     Route: 048
     Dates: start: 20150101, end: 20150101

REACTIONS (3)
  - Nystagmus [None]
  - Sudden hearing loss [Recovering/Resolving]
  - Vertigo [None]

NARRATIVE: CASE EVENT DATE: 20150102
